FAERS Safety Report 5833444-1 (Version None)
Quarter: 2008Q3

REPORT INFORMATION
  Report Type: 
  Country: None (occurrence: None)
  Receive Date: 20080801
  Receipt Date: 20080801
  Transmission Date: 20090109
  Serious: No
  Sender: FDA-Public Use
  Company Number: None

PATIENT
  Age: 6 Year
  Sex: Male
  Weight: 24.4942 kg

DRUGS (1)
  1. NASONEX [Suspect]
     Indication: RHINORRHOEA
     Dosage: ONCE IN MORNING ONCE IN AFTERNOON
     Dates: start: 20040901, end: 20080101

REACTIONS (1)
  - NASAL POLYPS [None]
